FAERS Safety Report 9000688 (Version 2)
Quarter: 2013Q1

REPORT INFORMATION
  Report Type: Spontaneous
  Country: US (occurrence: US)
  Receive Date: 20130107
  Receipt Date: 20130115
  Transmission Date: 20140127
  Serious: No
  Sender: FDA-Public Use
  Company Number: US-PFIZER INC-2013001589

PATIENT
  Age: 69 Year
  Sex: Female
  Weight: 77 kg

DRUGS (13)
  1. NORVASC [Suspect]
     Indication: HYPERTENSION
     Dosage: 5 MG, 1X/DAY
  2. NORVASC [Suspect]
     Dosage: 0.5 DF, 1X/DAY
  3. COREG [Concomitant]
     Indication: HYPERTENSION
     Dosage: 12.5 MG, 2X/DAY
     Route: 048
  4. TIMOLOL [Concomitant]
     Indication: GLAUCOMA
     Dosage: 1 GTT, 1X/DAY
     Route: 047
  5. VITAMIN D [Concomitant]
     Dosage: UNK
  6. CALCIUM SUPPLEMENT [Concomitant]
     Dosage: UNK
  7. CENTRUM SILVER [Concomitant]
     Dosage: 1X/DAY FOR 30 DAYS
     Route: 048
  8. PREVACID [Concomitant]
     Dosage: 30 MG, 1X/DAY
  9. ANUCORT-HC [Concomitant]
     Dosage: 25 MG, AS NEEDED
     Route: 054
  10. AMBIEN [Concomitant]
     Dosage: 5 MG, 1X/DAY
  11. FISH OIL [Concomitant]
     Dosage: 1200 MG, 1X/DAY
     Route: 048
  12. CLOBETASOL PROPIONATE [Concomitant]
     Indication: SKIN DISORDER
     Dosage: 0.05 %, DAILY AS NEEDED
     Route: 061
  13. ASA [Concomitant]
     Dosage: 81 MG, 1X/DAY
     Route: 048

REACTIONS (2)
  - Underdose [Unknown]
  - Nasopharyngitis [Not Recovered/Not Resolved]
